FAERS Safety Report 15298724 (Version 2)
Quarter: 2018Q3

REPORT INFORMATION
  Report Type: Spontaneous
  Country: DE (occurrence: DE)
  Receive Date: 20180820
  Receipt Date: 20180918
  Transmission Date: 20181010
  Serious: Yes (Death, Life-Threatening)
  Sender: FDA-Public Use
  Company Number: DE-TEVA-2018-DE-944214

PATIENT
  Age: 30 Year
  Sex: Female

DRUGS (11)
  1. DEPO?CLINOVIR [Suspect]
     Active Substance: MEDROXYPROGESTERONE ACETATE
     Indication: PRODUCT USED FOR UNKNOWN INDICATION
     Dosage: INTAKE FOR AT LEAST 3 MONTHS
     Route: 042
     Dates: end: 20180206
  2. ERGENYL [Concomitant]
     Active Substance: VALPROIC ACID
     Dosage: 1600 MILLIGRAM DAILY;
     Route: 048
     Dates: start: 20171231, end: 20180207
  3. ERGENYL [Concomitant]
     Active Substance: VALPROIC ACID
     Indication: PRODUCT USED FOR UNKNOWN INDICATION
     Dosage: 1000 MILLIGRAM DAILY; TAKING FOR YEARS
     Route: 048
     Dates: end: 20171219
  4. ERGENYL [Concomitant]
     Active Substance: VALPROIC ACID
     Indication: PRODUCT USED FOR UNKNOWN INDICATION
     Dosage: 1300 MILLIGRAM DAILY;
     Route: 048
     Dates: start: 20171220, end: 20171230
  5. CLOZAPINE. [Suspect]
     Active Substance: CLOZAPINE
     Dosage: 550?1100 MG
     Route: 048
     Dates: start: 2014, end: 20180207
  6. L?THYROXIN [Concomitant]
     Active Substance: LEVOTHYROXINE SODIUM
     Indication: HYPOTHYROIDISM
     Dosage: 50 GRAM DAILY; TAKING FOR YEARS
     Route: 048
     Dates: end: 20180207
  7. DOCITON [Suspect]
     Active Substance: PROPRANOLOL HYDROCHLORIDE
     Indication: PRODUCT USED FOR UNKNOWN INDICATION
     Dosage: 20 MILLIGRAM DAILY; TAKING FOR YEARS
     Route: 048
     Dates: end: 20180207
  8. PANTOPRAZOL [Concomitant]
     Active Substance: PANTOPRAZOLE SODIUM
     Dosage: 40 MILLIGRAM DAILY; TAKING FOR MONTHS
     Route: 048
     Dates: end: 20180207
  9. PIPAMPERON [Suspect]
     Active Substance: PIPAMPERONE HYDROCHLORIDE
     Indication: PRODUCT USED FOR UNKNOWN INDICATION
     Dosage: 120?160MG
     Route: 048
     Dates: start: 20180105, end: 20180207
  10. MAGNESIUM [Concomitant]
     Active Substance: MAGNESIUM
     Indication: PRODUCT USED FOR UNKNOWN INDICATION
     Dosage: 40 MILLIGRAM DAILY;
     Route: 048
     Dates: start: 20180105, end: 20180207
  11. VELMETIA [Concomitant]
     Active Substance: METFORMIN\SITAGLIPTIN
     Indication: TYPE 2 DIABETES MELLITUS
     Dosage: 2 DOSAGE FORMS DAILY; TAKING FOR YEARS
     Route: 048
     Dates: end: 20180207

REACTIONS (1)
  - Death [Fatal]

NARRATIVE: CASE EVENT DATE: 20180207
